APPROVED DRUG PRODUCT: DITROPAN
Active Ingredient: OXYBUTYNIN CHLORIDE
Strength: 5MG **Federal Register determination that product was not discontinued or withdrawn for safety or effectiveness reasons**
Dosage Form/Route: TABLET;ORAL
Application: N017577 | Product #001
Applicant: JANSSEN PHARMACEUTICALS INC
Approved: Approved Prior to Jan 1, 1982 | RLD: Yes | RS: No | Type: DISCN